FAERS Safety Report 15574493 (Version 2)
Quarter: 2018Q4

REPORT INFORMATION
  Report Type: Spontaneous
  Country: US (occurrence: US)
  Receive Date: 20181101
  Receipt Date: 20181212
  Transmission Date: 20190205
  Serious: Yes (Other)
  Sender: FDA-Public Use
  Company Number: US-AMGEN-USASP2018152467

PATIENT
  Age: 70 Year
  Sex: Male
  Weight: 72.56 kg

DRUGS (1)
  1. ENBREL [Suspect]
     Active Substance: ETANERCEPT
     Indication: PSORIATIC ARTHROPATHY
     Dosage: 50 MG, QWK
     Route: 065
     Dates: start: 1998

REACTIONS (5)
  - Skin squamous cell carcinoma metastatic [Unknown]
  - Blood urea nitrogen/creatinine ratio decreased [Unknown]
  - Blood glucose increased [Unknown]
  - Psoriatic arthropathy [Recovering/Resolving]
  - Glycosylated haemoglobin increased [Unknown]

NARRATIVE: CASE EVENT DATE: 2011
